FAERS Safety Report 4272841-5 (Version None)
Quarter: 2004Q1

REPORT INFORMATION
  Report Type: 
  Country: None (occurrence: None)
  Receive Date: 20040114
  Receipt Date: 20040105
  Transmission Date: 20041129
  Serious: Yes (Other)
  Sender: FDA-Public Use
  Company Number: HQWYE121706JAN04

PATIENT
  Age: 65 Year
  Sex: Female
  Weight: 72.19 kg

DRUGS (4)
  1. EFFEXOR XR [Suspect]
     Indication: DEPRESSION
     Dosage: 150 MG 1X PER 1 DAY, ORAL
     Route: 048
     Dates: start: 20010901, end: 20031101
  2. LIPITOR [Concomitant]
  3. AMBIEN [Concomitant]
  4. ZYPREXA [Concomitant]

REACTIONS (4)
  - BLOOD PRESSURE INCREASED [None]
  - CARDIAC MURMUR [None]
  - EXTRASYSTOLES [None]
  - PULMONARY HYPERTENSION [None]
